FAERS Safety Report 6971317-1 (Version None)
Quarter: 2010Q3

REPORT INFORMATION
  Report Type: 
  Country: None (occurrence: None)
  Receive Date: 20100908
  Receipt Date: 20100728
  Transmission Date: 20110219
  Serious: Yes (Death, Hospitalization, Other)
  Sender: FDA-Public Use
  Company Number: PHHO2009BR13465

PATIENT
  Sex: Female
  Weight: 85.5 kg

DRUGS (2)
  1. DICLOFENAC SODIUM [Suspect]
     Indication: OSTEOARTHRITIS
     Dosage: 50 MG, 1X/DAY
     Route: 048
     Dates: start: 20090110
  2. ESOMEPRAZOLE MAGNESIUM [Concomitant]
     Indication: PROPHYLAXIS

REACTIONS (2)
  - CEREBROVASCULAR ACCIDENT [None]
  - HYPERTENSION [None]
